FAERS Safety Report 23986430 (Version 5)
Quarter: 2025Q1

REPORT INFORMATION
  Report Type: Spontaneous
  Country: US (occurrence: US)
  Receive Date: 20240618
  Receipt Date: 20250109
  Transmission Date: 20250409
  Serious: Yes (Death, Hospitalization, Other)
  Sender: ALEXION PHARMACEUTICALS
  Company Number: 2024A139508

PATIENT
  Age: 73 Year
  Weight: 61.1 kg

DRUGS (41)
  1. OLAPARIB [Suspect]
     Active Substance: OLAPARIB
     Indication: Adenocarcinoma
     Dosage: 600 MILLIGRAM, BID
     Route: 048
  2. OLAPARIB [Suspect]
     Active Substance: OLAPARIB
     Dosage: 600 MILLIGRAM, BID
  3. OLAPARIB [Suspect]
     Active Substance: OLAPARIB
     Dosage: 600 MILLIGRAM, BID
  4. OLAPARIB [Suspect]
     Active Substance: OLAPARIB
     Dosage: 600 MILLIGRAM, BID
     Route: 048
  5. OLAPARIB [Suspect]
     Active Substance: OLAPARIB
     Dosage: 100 MILLIGRAM, BID
  6. OLAPARIB [Suspect]
     Active Substance: OLAPARIB
     Dosage: 100 MILLIGRAM, BID
     Route: 048
  7. OLAPARIB [Suspect]
     Active Substance: OLAPARIB
     Dosage: 100 MILLIGRAM, BID
     Route: 048
  8. OLAPARIB [Suspect]
     Active Substance: OLAPARIB
     Dosage: 100 MILLIGRAM, BID
  9. OLAPARIB [Suspect]
     Active Substance: OLAPARIB
     Dosage: 100 MILLIGRAM, BID
     Route: 048
  10. OLAPARIB [Suspect]
     Active Substance: OLAPARIB
     Dosage: 100 MILLIGRAM, BID
  11. OLAPARIB [Suspect]
     Active Substance: OLAPARIB
     Dosage: 100 MILLIGRAM, BID
     Route: 048
  12. OLAPARIB [Suspect]
     Active Substance: OLAPARIB
     Dosage: 100 MILLIGRAM, BID
  13. OLAPARIB [Suspect]
     Active Substance: OLAPARIB
     Dosage: 100 MILLIGRAM, BID
  14. OLAPARIB [Suspect]
     Active Substance: OLAPARIB
     Dosage: 100 MILLIGRAM, BID
     Route: 048
  15. OLAPARIB [Suspect]
     Active Substance: OLAPARIB
     Dosage: 100 MILLIGRAM, BID
  16. OLAPARIB [Suspect]
     Active Substance: OLAPARIB
     Dosage: 100 MILLIGRAM, BID
     Route: 048
  17. VUDALIMAB [Suspect]
     Active Substance: VUDALIMAB
     Route: 065
  18. VUDALIMAB [Suspect]
     Active Substance: VUDALIMAB
     Route: 065
  19. LIPITOR [Concomitant]
     Active Substance: ATORVASTATIN CALCIUM
     Route: 065
  20. LIPITOR [Concomitant]
     Active Substance: ATORVASTATIN CALCIUM
     Route: 065
  21. LISINOPRIL [Concomitant]
     Active Substance: LISINOPRIL
  22. ACETAMINOPHEN [Concomitant]
     Active Substance: ACETAMINOPHEN
     Route: 065
  23. ACETAMINOPHEN [Concomitant]
     Active Substance: ACETAMINOPHEN
     Route: 065
  24. FLOMAX [Concomitant]
     Active Substance: TAMSULOSIN HYDROCHLORIDE
     Route: 065
  25. FLOMAX [Concomitant]
     Active Substance: TAMSULOSIN HYDROCHLORIDE
     Route: 065
  26. OXYCODONE [Concomitant]
     Active Substance: OXYCODONE
     Route: 065
  27. OXYCODONE [Concomitant]
     Active Substance: OXYCODONE
     Route: 065
  28. KENALOG [Concomitant]
     Active Substance: TRIAMCINOLONE ACETONIDE
     Route: 065
  29. KENALOG [Concomitant]
     Active Substance: TRIAMCINOLONE ACETONIDE
     Route: 065
  30. IBUPROFEN [Concomitant]
     Active Substance: IBUPROFEN
     Route: 065
  31. IBUPROFEN [Concomitant]
     Active Substance: IBUPROFEN
     Route: 065
  32. PREDNISONE [Concomitant]
     Active Substance: PREDNISONE
     Route: 065
  33. PREDNISONE [Concomitant]
     Active Substance: PREDNISONE
     Route: 065
  34. XARELTO [Concomitant]
     Active Substance: RIVAROXABAN
     Route: 065
  35. XARELTO [Concomitant]
     Active Substance: RIVAROXABAN
     Route: 065
  36. ELIQUIS [Concomitant]
     Active Substance: APIXABAN
     Route: 065
  37. ELIQUIS [Concomitant]
     Active Substance: APIXABAN
     Route: 065
  38. ELIGARD [Concomitant]
     Active Substance: LEUPROLIDE ACETATE
     Route: 065
  39. ELIGARD [Concomitant]
     Active Substance: LEUPROLIDE ACETATE
     Route: 065
  40. HEPARIN [Concomitant]
     Active Substance: HEPARIN SODIUM
     Route: 065
  41. HEPARIN [Concomitant]
     Active Substance: HEPARIN SODIUM
     Route: 065

REACTIONS (10)
  - Humerus fracture [Recovered/Resolved]
  - Death [Fatal]
  - Malignant neoplasm progression [Unknown]
  - Deep vein thrombosis [Recovering/Resolving]
  - Fall [Unknown]
  - Anaemia [Unknown]
  - Dermatitis acneiform [Unknown]
  - Overdose [Unknown]
  - Inappropriate schedule of product administration [Unknown]
  - Therapy change [Unknown]
